FAERS Safety Report 9554995 (Version 1)
Quarter: 2013Q3

REPORT INFORMATION
  Report Type: Spontaneous
  Country: US (occurrence: None)
  Receive Date: 20130815
  Receipt Date: 20130815
  Transmission Date: 20140515
  Serious: Yes (Other)
  Sender: FDA-Public Use
  Company Number: ADR-2013-00182

PATIENT
  Sex: Male

DRUGS (3)
  1. LIORESAL [Suspect]
     Indication: MUSCLE SPASTICITY
     Dosage: 422 MCG/DAY
  2. ORAL BACLOFEN [Concomitant]
  3. GABAPENTIN, CYMBALTA [Concomitant]

REACTIONS (3)
  - Somnolence [None]
  - Lethargy [None]
  - Unresponsive to stimuli [None]
